FAERS Safety Report 6264902-6 (Version None)
Quarter: 2009Q3

REPORT INFORMATION
  Report Type: 
  Country: None (occurrence: None)
  Receive Date: 20090713
  Receipt Date: 20090708
  Transmission Date: 20100115
  Serious: Yes (Death)
  Sender: FDA-Public Use
  Company Number: US-BIOGENIDEC-2009BI020704

PATIENT
  Sex: Female

DRUGS (6)
  1. TYSABRI [Suspect]
     Indication: MULTIPLE SCLEROSIS
     Route: 042
     Dates: start: 20070525, end: 20081028
  2. BACLOFEN [Concomitant]
  3. TRILEPTAL [Concomitant]
  4. MIRALAX [Concomitant]
  5. MACRODANTIN [Concomitant]
  6. PREDNISONE TAB [Concomitant]

REACTIONS (1)
  - COMPLETED SUICIDE [None]
